FAERS Safety Report 4761559-8 (Version None)
Quarter: 2005Q3

REPORT INFORMATION
  Report Type: 
  Country: None (occurrence: None)
  Receive Date: 20050901
  Receipt Date: 20041122
  Transmission Date: 20060218
  Serious: Yes (Other)
  Sender: FDA-Public Use
  Company Number: 15436

PATIENT
  Age: 60 Year
  Sex: Female
  Weight: 142 kg

DRUGS (5)
  1. PACLITAXEL [Suspect]
     Indication: ENDOMETRIAL CANCER
     Dosage: 140MG IV X 2
     Route: 042
     Dates: start: 20041109, end: 20041117
  2. ZOFRAN [Concomitant]
  3. DECADRON [Concomitant]
  4. PEPCID [Concomitant]
  5. BENADRYL [Concomitant]

REACTIONS (3)
  - DYSPNOEA [None]
  - INFUSION RELATED REACTION [None]
  - STOMACH DISCOMFORT [None]
